FAERS Safety Report 14210803 (Version 2)
Quarter: 2018Q1

REPORT INFORMATION
  Report Type: Spontaneous
  Country: JP (occurrence: JP)
  Receive Date: 20171121
  Receipt Date: 20180103
  Transmission Date: 20180508
  Serious: Yes (Death, Life-Threatening, Hospitalization, Other)
  Sender: FDA-Public Use
  Company Number: JP-JNJFOC-20171031200

PATIENT
  Age: 76 Year
  Sex: Male
  Weight: 73 kg

DRUGS (3)
  1. LYRICA [Concomitant]
     Active Substance: PREGABALIN
     Indication: SPINAL COLUMN STENOSIS
     Route: 048
     Dates: start: 20141206, end: 20171009
  2. XARELTO [Suspect]
     Active Substance: RIVAROXABAN
     Indication: ATRIAL FIBRILLATION
     Route: 048
     Dates: start: 20170926, end: 20171003
  3. LYRICA [Concomitant]
     Active Substance: PREGABALIN
     Indication: SCIATICA
     Route: 048
     Dates: start: 20141206, end: 20171009

REACTIONS (6)
  - Decreased appetite [Unknown]
  - Thrombocytopenia [Fatal]
  - Pyrexia [Unknown]
  - Acute interstitial pneumonitis [Unknown]
  - Respiratory disorder [Fatal]
  - Rash [Unknown]

NARRATIVE: CASE EVENT DATE: 20171003
